FAERS Safety Report 17999662 (Version 1)
Quarter: 2020Q3

REPORT INFORMATION
  Report Type: Spontaneous
  Country: US (occurrence: US)
  Receive Date: 20200709
  Receipt Date: 20200709
  Transmission Date: 20201103
  Serious: No
  Sender: FDA-Public Use
  Company Number: None

PATIENT
  Sex: Female

DRUGS (1)
  1. RASUVO [Suspect]
     Active Substance: METHOTREXATE SODIUM
     Indication: RHEUMATOID ARTHRITIS
     Route: 058
     Dates: start: 202005

REACTIONS (7)
  - Depression [None]
  - Drug ineffective [None]
  - Arthralgia [None]
  - Alopecia [None]
  - Joint swelling [None]
  - Loss of personal independence in daily activities [None]
  - Gait disturbance [None]
